FAERS Safety Report 10046432 (Version 1)
Quarter: 2014Q1

REPORT INFORMATION
  Report Type: Spontaneous
  Country: US (occurrence: US)
  Receive Date: 20140331
  Receipt Date: 20140331
  Transmission Date: 20141002
  Serious: No
  Sender: FDA-Public Use
  Company Number: US-BIOGENIDEC-2014BI027635

PATIENT
  Age: 62 Year
  Sex: Female
  Weight: 72 kg

DRUGS (11)
  1. TECFIDERA [Suspect]
     Indication: MULTIPLE SCLEROSIS
     Route: 048
  2. CYMBALTA [Concomitant]
     Route: 048
  3. FLEXERIL [Concomitant]
     Route: 048
  4. MOTRIN [Concomitant]
     Route: 048
  5. MELOXICAM [Concomitant]
     Route: 048
  6. LYRICA [Concomitant]
     Route: 048
  7. TRAZODONE [Concomitant]
     Route: 048
  8. CLONAZEPAM [Concomitant]
     Route: 048
  9. BACLOFEN [Concomitant]
     Route: 048
  10. WELLBUTRIN [Concomitant]
     Route: 048
  11. PRILOSEC [Concomitant]
     Route: 048

REACTIONS (3)
  - Speech disorder [Unknown]
  - Aphasia [Unknown]
  - Dysphemia [Unknown]
